FAERS Safety Report 26105526 (Version 1)
Quarter: 2025Q4

REPORT INFORMATION
  Report Type: Spontaneous
  Country: EU (occurrence: EU)
  Receive Date: 20251201
  Receipt Date: 20251201
  Transmission Date: 20260118
  Serious: Yes (Death)
  Sender: AMGEN
  Company Number: EU-AMGEN-DEUSP2025233276

PATIENT

DRUGS (2)
  1. BEVACIZUMAB [Suspect]
     Active Substance: BEVACIZUMAB
     Indication: Hepatocellular carcinoma
     Dosage: 15 MILLIGRAM/KILOGRAM, Q3WK
     Route: 040
  2. ATEZOLIZUMAB [Suspect]
     Active Substance: ATEZOLIZUMAB
     Indication: Hepatocellular carcinoma
     Dosage: 1200 MILLIGRAM
     Route: 040

REACTIONS (10)
  - Death [Fatal]
  - Hepatocellular carcinoma [Fatal]
  - Hepatic failure [Fatal]
  - Cardiac disorder [Fatal]
  - Duodenal ulcer perforation [Fatal]
  - Oesophageal varices haemorrhage [Fatal]
  - Haemorrhage [Fatal]
  - Infection [Fatal]
  - Therapy partial responder [Unknown]
  - Off label use [Unknown]
